FAERS Safety Report 24554051 (Version 2)
Quarter: 2024Q4

REPORT INFORMATION
  Report Type: Report from Study
  Country: DE (occurrence: DE)
  Receive Date: 20241028
  Receipt Date: 20241118
  Transmission Date: 20250114
  Serious: Yes (Hospitalization)
  Sender: ROCHE
  Company Number: DE-ML39632-2338017-0

PATIENT
  Age: 26 Year
  Sex: Female

DRUGS (2)
  1. OCREVUS [Suspect]
     Active Substance: OCRELIZUMAB
     Indication: Relapsing multiple sclerosis
     Route: 042
     Dates: start: 20200205, end: 20200219
  2. OCREVUS [Suspect]
     Active Substance: OCRELIZUMAB
     Route: 042
     Dates: start: 20200812

REACTIONS (3)
  - Pneumonia [Recovering/Resolving]
  - Drug eruption [Recovered/Resolved]
  - COVID-19 [Recovering/Resolving]

NARRATIVE: CASE EVENT DATE: 20240901
